FAERS Safety Report 9260971 (Version 1)
Quarter: 2013Q2

REPORT INFORMATION
  Report Type: Spontaneous
  Country: US (occurrence: US)
  Receive Date: 20130429
  Receipt Date: 20130429
  Transmission Date: 20140414
  Serious: No
  Sender: FDA-Public Use
  Company Number: US-AMGEN-USASP2012039981

PATIENT
  Age: 65 Year
  Sex: Female

DRUGS (2)
  1. SENSIPAR [Suspect]
     Indication: HYPERPARATHYROIDISM
     Dosage: 30 MG, QD
     Route: 048
     Dates: end: 20120621
  2. SENSIPAR [Suspect]
     Indication: NEPHROPATHY

REACTIONS (1)
  - Headache [Not Recovered/Not Resolved]
